FAERS Safety Report 9691565 (Version 1)
Quarter: 2013Q4

REPORT INFORMATION
  Report Type: Spontaneous
  Country: US (occurrence: US)
  Receive Date: 20131115
  Receipt Date: 20131115
  Transmission Date: 20140711
  Serious: Yes (Hospitalization)
  Sender: FDA-Public Use
  Company Number: US-BRISTOL-MYERS SQUIBB COMPANY-19789775

PATIENT
  Age: 41 Year
  Sex: Female
  Weight: 118.36 kg

DRUGS (2)
  1. BYETTA [Suspect]
     Indication: TYPE 2 DIABETES MELLITUS
     Dosage: BYETTA 5MCG RESTARTED ON 05NOV2013.?PRESCRIPTION #: 434659
     Dates: start: 201307
  2. METFORMIN [Concomitant]

REACTIONS (3)
  - Gastrooesophageal reflux disease [Unknown]
  - Gastroenteritis viral [Unknown]
  - Blood potassium decreased [Unknown]
